FAERS Safety Report 16421221 (Version 1)
Quarter: 2019Q2

REPORT INFORMATION
  Report Type: Spontaneous
  Country: US (occurrence: US)
  Receive Date: 20190506
  Receipt Date: 20190506
  Transmission Date: 20190711
  Serious: Yes (Hospitalization)
  Sender: FDA-Public Use
  Company Number: None

PATIENT
  Sex: Male

DRUGS (8)
  1. CLARITIN [Concomitant]
     Active Substance: LORATADINE
  2. ACETYLCYST [Concomitant]
  3. FLONASE [Concomitant]
     Active Substance: FLUTICASONE PROPIONATE
  4. TOBRAMYCIN 300MG/ML ALCON [Suspect]
     Active Substance: TOBRAMYCIN
     Route: 055
     Dates: start: 20150821
  5. BACLOFEN. [Concomitant]
     Active Substance: BACLOFEN
  6. CALCIUM [Concomitant]
     Active Substance: CALCIUM
  7. DIAZEPAM. [Concomitant]
     Active Substance: DIAZEPAM
  8. AZITHROMYIN [Concomitant]

REACTIONS (1)
  - Pneumonia [None]
